FAERS Safety Report 12485626 (Version 1)
Quarter: 2016Q2

REPORT INFORMATION
  Report Type: Spontaneous
  Country: US (occurrence: US)
  Receive Date: 20160621
  Receipt Date: 20160621
  Transmission Date: 20160815
  Serious: Yes (Other)
  Sender: FDA-Public Use
  Company Number: US-BAYER-2016-005654

PATIENT
  Age: 51 Year
  Sex: Female
  Weight: 52.61 kg

DRUGS (2)
  1. COPPERTONE ULTRAGUARD SPF 50 [Suspect]
     Active Substance: AVOBENZONE\DIHYDROXYACETONE\DIMETHICONE COPOLYOL\HEXYL LAURATE\HOMOSALATE\OCTISALATE\OCTOCRYLENE\OXYBENZONE\PROPYLENE GLYCOL
     Dosage: 1 DOSE, QD
     Route: 061
     Dates: start: 20160106, end: 20160107
  2. LIPITOR [Concomitant]
     Active Substance: ATORVASTATIN CALCIUM

REACTIONS (4)
  - Dermatitis [Recovering/Resolving]
  - Drug eruption [Recovering/Resolving]
  - Drug hypersensitivity [Recovering/Resolving]
  - Urticaria [Recovering/Resolving]

NARRATIVE: CASE EVENT DATE: 20160106
